FAERS Safety Report 8827712 (Version 1)
Quarter: 2012Q4

REPORT INFORMATION
  Report Type: 
  Country: US (occurrence: US)
  Receive Date: 20121008
  Receipt Date: 20121008
  Transmission Date: 20130627
  Serious: No
  Sender: FDA-Public Use
  Company Number: US-PFIZER INC-2012244193

PATIENT

DRUGS (1)
  1. XALKORI [Suspect]
     Indication: NEOPLASM MALIGNANT

REACTIONS (2)
  - Disease progression [Unknown]
  - Neoplasm malignant [Unknown]
